FAERS Safety Report 5836269-6 (Version None)
Quarter: 2008Q3

REPORT INFORMATION
  Report Type: 
  Country: None (occurrence: None)
  Receive Date: 20080807
  Receipt Date: 20080805
  Transmission Date: 20090109
  Serious: Yes (Hospitalization)
  Sender: FDA-Public Use
  Company Number: US-BRISTOL-MYERS SQUIBB COMPANY-14276836

PATIENT
  Age: 60 Year
  Sex: Female

DRUGS (7)
  1. PARAPLATIN [Suspect]
     Indication: NEOPLASM MALIGNANT
     Dosage: 1 DF = 5 MG/ML/MIN AUC. CYC1:25OCT05 CYC2:30NOV05 CYC3:19DEC05 CYC5:22MAR06
     Route: 042
     Dates: start: 20060130, end: 20060130
  2. ACTIMMUNE [Suspect]
     Indication: NEOPLASM MALIGNANT
     Dosage: ON FIFTH AND SEVENTH DAY OF EACH 7-DAY CYCLE OF GM-CSF ADMN ON: 23FEB06 + 25FEB06 0.1MG(SEC)
     Route: 058
  3. LEUKINE [Suspect]
     Indication: NEOPLASM MALIGNANT
     Dosage: TWO 7-DAY COURSES, ONE PRECEDING AND ONE FOLLOWING A FIXED IV DOSE OF CARBOPLATIN
     Route: 058
     Dates: start: 20060219, end: 20060225
  4. VICODIN [Concomitant]
  5. IBUPROFEN TABLETS [Concomitant]
  6. ZOFRAN [Concomitant]
  7. SENOKOT [Concomitant]

REACTIONS (2)
  - NAUSEA [None]
  - VOMITING [None]
